FAERS Safety Report 10654055 (Version 1)
Quarter: 2014Q4

REPORT INFORMATION
  Report Type: Spontaneous
  Country: US (occurrence: US)
  Receive Date: 20141216
  Receipt Date: 20141216
  Transmission Date: 20150529
  Serious: Yes (Hospitalization)
  Sender: FDA-Public Use
  Company Number: US-BAYER-2014-182016

PATIENT
  Age: 68 Year
  Sex: Male

DRUGS (2)
  1. BETASERON [Suspect]
     Active Substance: INTERFERON BETA-1B
     Indication: MULTIPLE SCLEROSIS
     Dosage: 25 MG, UNK
     Dates: start: 2004, end: 201407
  2. BETASERON [Suspect]
     Active Substance: INTERFERON BETA-1B
     Indication: MULTIPLE SCLEROSIS
     Dosage: 25 MG, UNK
     Route: 058
     Dates: start: 201412

REACTIONS (3)
  - Dehydration [None]
  - Pyrexia [None]
  - Cardiac operation [None]

NARRATIVE: CASE EVENT DATE: 201312
